FAERS Safety Report 18091713 (Version 1)
Quarter: 2020Q3

REPORT INFORMATION
  Report Type: Spontaneous
  Country: US (occurrence: US)
  Receive Date: 20200730
  Receipt Date: 20200730
  Transmission Date: 20201103
  Serious: Yes (Hospitalization)
  Sender: FDA-Public Use
  Company Number: US-ACCORD-193704

PATIENT
  Age: 45 Year
  Sex: Male

DRUGS (7)
  1. BENZATROPINE [Concomitant]
     Active Substance: BENZTROPINE
  2. CLOZAPINE. [Suspect]
     Active Substance: CLOZAPINE
     Indication: SCHIZOAFFECTIVE DISORDER
  3. RISPERIDONE. [Concomitant]
     Active Substance: RISPERIDONE
  4. DIPHENHYDRAMINE. [Concomitant]
     Active Substance: DIPHENHYDRAMINE
  5. PROPRANOLOL [Concomitant]
     Active Substance: PROPRANOLOL HYDROCHLORIDE
  6. ALPRAZOLAM. [Concomitant]
     Active Substance: ALPRAZOLAM
  7. LINACLOTIDE [Concomitant]
     Active Substance: LINACLOTIDE

REACTIONS (1)
  - Synovial cyst [Recovered/Resolved]
